FAERS Safety Report 10270384 (Version 1)
Quarter: 2014Q3

REPORT INFORMATION
  Report Type: Spontaneous
  Country: CH (occurrence: CH)
  Receive Date: 20140701
  Receipt Date: 20140701
  Transmission Date: 20150326
  Serious: Yes (Death)
  Sender: FDA-Public Use
  Company Number: CH-BAYER-2014-094947

PATIENT
  Age: 85 Year

DRUGS (13)
  1. TOREM [Concomitant]
     Active Substance: TORSEMIDE
     Dosage: 1 DF, QD
     Route: 048
     Dates: end: 20140418
  2. CONCOR [Concomitant]
     Active Substance: BISOPROLOL FUMARATE
     Dosage: 2.5 MG, QD
     Route: 048
     Dates: end: 20140418
  3. VI-DE3 [Concomitant]
     Dosage: 10 GTT, QD
     Route: 048
     Dates: end: 20140418
  4. CORDARON [Suspect]
     Active Substance: AMIODARONE HYDROCHLORIDE
     Indication: ATRIAL FIBRILLATION
     Dosage: UNK
     Route: 048
     Dates: start: 20140102, end: 20140418
  5. PANTOZOL [Concomitant]
     Active Substance: PANTOPRAZOLE SODIUM
     Dosage: 40 MG, QD
     Route: 048
     Dates: end: 20140418
  6. LAXOBERON [Concomitant]
     Active Substance: SODIUM PICOSULFATE
     Dosage: 10 GTT, QD
     Route: 048
     Dates: end: 20140418
  7. ASPIRIN CARDIO [Suspect]
     Active Substance: ASPIRIN
     Indication: ACUTE MYOCARDIAL INFARCTION
     Dosage: 100 MG, QD
     Route: 048
     Dates: start: 201401, end: 20140418
  8. TRANSIPEG [MACROGOL 3350,KCL,NA BICARB,NACL,NA+ SULF ANHYDR] [Concomitant]
     Dosage: 1 DF, TID
     Route: 048
     Dates: end: 20140418
  9. VITARUBIN [Concomitant]
     Dosage: 1000 ?G, 1 PER 3 MONTHS
     Route: 058
     Dates: end: 20140418
  10. CRESTOR [Concomitant]
     Active Substance: ROSUVASTATIN CALCIUM
     Dosage: 5 MG, QD
     Route: 048
     Dates: end: 20140418
  11. MARCOUMAR [Suspect]
     Active Substance: PHENPROCOUMON
     Indication: ATRIAL FIBRILLATION
     Dosage: 3 MG, PRN
     Route: 048
     Dates: start: 201401, end: 20140418
  12. NITRODERM [Concomitant]
     Active Substance: NITROGLYCERIN
     Dosage: UNK
     Route: 062
     Dates: end: 201403
  13. ALDACTONE [Concomitant]
     Active Substance: SPIRONOLACTONE
     Dosage: 12.5 MG, QD
     Route: 048
     Dates: end: 20140418

REACTIONS (9)
  - General physical health deterioration [None]
  - Dyspnoea [None]
  - International normalised ratio increased [None]
  - Shock [None]
  - Gastrointestinal haemorrhage [Fatal]
  - Abdominal distension [None]
  - Decreased appetite [None]
  - Fatigue [None]
  - Erosive duodenitis [None]

NARRATIVE: CASE EVENT DATE: 2014
